FAERS Safety Report 5736983-7 (Version None)
Quarter: 2008Q2

REPORT INFORMATION
  Report Type: 
  Country: None (occurrence: None)
  Receive Date: 20080512
  Receipt Date: 20080512
  Transmission Date: 20081010
  Serious: Yes (Life-Threatening, Other)
  Sender: FDA-Public Use
  Company Number: None

PATIENT
  Age: 78 Year
  Sex: Female
  Weight: 77.1115 kg

DRUGS (2)
  1. ZOLPIDEM [Suspect]
     Indication: INSOMNIA
     Dosage: 1 TAB AT BEDTIME
     Dates: start: 20070108
  2. ZOLPIDEM [Suspect]
     Indication: INSOMNIA
     Dosage: 1 TAB AT BEDTIME
     Dates: start: 20071214

REACTIONS (10)
  - ABNORMAL SLEEP-RELATED EVENT [None]
  - AMNESIA [None]
  - CONTUSION [None]
  - FATIGUE [None]
  - FEAR [None]
  - OEDEMA PERIPHERAL [None]
  - PAIN IN EXTREMITY [None]
  - SCAR [None]
  - SKIN HAEMORRHAGE [None]
  - SOMNAMBULISM [None]
